FAERS Safety Report 24368600 (Version 1)
Quarter: 2024Q3

REPORT INFORMATION
  Report Type: Spontaneous
  Country: US (occurrence: US)
  Receive Date: 20240926
  Receipt Date: 20240926
  Transmission Date: 20241017
  Serious: No
  Sender: AMGEN
  Company Number: US-AMGEN-USASP2024186698

PATIENT
  Sex: Male

DRUGS (3)
  1. IMDELLTRA [Suspect]
     Active Substance: TARLATAMAB-DLLE
     Indication: Small cell lung cancer extensive stage
     Dosage: UNK, INITIAL STEP UP DOSING PER PRESCRIBING INFO C1D1
     Route: 042
     Dates: start: 20240903, end: 20240903
  2. IMDELLTRA [Suspect]
     Active Substance: TARLATAMAB-DLLE
     Dosage: UNK, C1D8, 10MG IV OVER 1 HOUR EVERY 2WKS AFTER AN INITIAL STEP UP DOSING PER PRESCRIBING INFO
     Route: 042
     Dates: start: 20240911
  3. DEXAMETHASONE [Suspect]
     Active Substance: DEXAMETHASONE
     Indication: Product used for unknown indication
     Route: 065

REACTIONS (13)
  - Pruritus [Recovered/Resolved]
  - Headache [Recovered/Resolved]
  - Fluid retention [Recovered/Resolved]
  - Nocturia [Recovered/Resolved]
  - Blood glucose abnormal [Unknown]
  - Pain [Unknown]
  - Hyperaesthesia [Unknown]
  - Rash erythematous [Not Recovered/Not Resolved]
  - Ageusia [Unknown]
  - Interleukin level increased [Unknown]
  - Productive cough [Recovered/Resolved]
  - Sputum discoloured [Recovered/Resolved]
  - Pyrexia [Recovered/Resolved]

NARRATIVE: CASE EVENT DATE: 20240901
